FAERS Safety Report 6135061-5 (Version None)
Quarter: 2009Q1

REPORT INFORMATION
  Report Type: 
  Country: None (occurrence: None)
  Receive Date: 20090327
  Receipt Date: 20090324
  Transmission Date: 20090719
  Serious: Yes (Other)
  Sender: FDA-Public Use
  Company Number: CM-PFIZER INC-2009188960

PATIENT

DRUGS (2)
  1. METHYLPREDNISOLONE AND METHYLPREDNISOLONE ACETATE AND METHYLPREDNISOLO [Suspect]
     Indication: PHARYNGITIS
     Dosage: 16 MG, DAILY
     Route: 048
     Dates: start: 20090309, end: 20090310
  2. AZITHROMYCIN [Suspect]
     Indication: PHARYNGITIS

REACTIONS (1)
  - ABDOMINAL PAIN UPPER [None]
